FAERS Safety Report 25441416 (Version 2)
Quarter: 2025Q2

REPORT INFORMATION
  Report Type: Spontaneous
  Country: IN (occurrence: IN)
  Receive Date: 20250616
  Receipt Date: 20250626
  Transmission Date: 20250717
  Serious: Yes (Other)
  Sender: RANBAXY
  Company Number: IN-SUN PHARMACEUTICAL INDUSTRIES LTD-2025R1-511619

PATIENT
  Sex: Male

DRUGS (3)
  1. MINOXIDIL [Suspect]
     Active Substance: MINOXIDIL
     Indication: Alopecia
     Route: 061
  2. MINOXIDIL [Suspect]
     Active Substance: MINOXIDIL
     Indication: Alopecia
     Dosage: 2.5 MILLIGRAM, BID
     Route: 048
  3. BIOTIN [Suspect]
     Active Substance: BIOTIN
     Indication: Alopecia
     Route: 065

REACTIONS (2)
  - Blindness [Recovered/Resolved]
  - Colour blindness [Recovered/Resolved]
